FAERS Safety Report 10083307 (Version 1)
Quarter: 2014Q2

REPORT INFORMATION
  Report Type: Spontaneous
  Country: US (occurrence: None)
  Receive Date: 20140416
  Receipt Date: 20140416
  Transmission Date: 20141212
  Serious: Yes (Other)
  Sender: FDA-Public Use
  Company Number: None

PATIENT
  Age: 90 Year
  Sex: Female

DRUGS (13)
  1. FUROSEMIDE 40 MG [Suspect]
     Indication: DIURETIC THERAPY
     Route: 048
     Dates: start: 20131219, end: 20140414
  2. SIMVASTATIN [Concomitant]
  3. LEVOXYL [Concomitant]
  4. CLONAZEPAM [Concomitant]
  5. ZOLPIDEM [Concomitant]
  6. ALLOPURINOL [Concomitant]
  7. ATENOLOL [Concomitant]
  8. POTASSIUM [Concomitant]
  9. AMLODIPINE [Concomitant]
  10. ASPIRIN [Concomitant]
  11. VITAMIN D [Concomitant]
  12. DOCUSATE [Concomitant]
  13. EYE VITAMIN [Concomitant]

REACTIONS (4)
  - Alopecia [None]
  - Fear [None]
  - Alopecia [None]
  - Blood pressure increased [None]
